FAERS Safety Report 8796335 (Version 1)
Quarter: 2012Q4

REPORT INFORMATION
  Report Type: 
  Country: US (occurrence: US)
  Receive Date: 20120919
  Receipt Date: 20120919
  Transmission Date: 20130627
  Serious: Yes (Death, Hospitalization)
  Sender: FDA-Public Use
  Company Number: US-PFIZER INC-2012230126

PATIENT
  Age: 43 Year
  Sex: Male
  Weight: 73.02 kg

DRUGS (1)
  1. CELEBREX [Suspect]
     Indication: MYALGIA
     Dosage: 200 mg, UNK
     Route: 048
     Dates: start: 20120605, end: 20120702

REACTIONS (3)
  - Cerebral haemorrhage [Fatal]
  - Coma [Fatal]
  - Cerebrovascular accident [Fatal]
